FAERS Safety Report 5823372-X (Version None)
Quarter: 2008Q3

REPORT INFORMATION
  Report Type: 
  Country: None (occurrence: None)
  Receive Date: 20080725
  Receipt Date: 20080703
  Transmission Date: 20090109
  Serious: Yes (Other)
  Sender: FDA-Public Use
  Company Number: SE-ROCHE-561579

PATIENT
  Age: 18 Year
  Sex: Male

DRUGS (1)
  1. ROACCUTAN [Suspect]
     Route: 065
     Dates: start: 19990101, end: 19990101

REACTIONS (8)
  - ALOPECIA [None]
  - ANXIETY [None]
  - ARTHRALGIA [None]
  - BONE DISORDER [None]
  - DEPRESSION [None]
  - EXOSTOSIS [None]
  - HEADACHE [None]
  - SUICIDAL IDEATION [None]
